FAERS Safety Report 8260322-3 (Version None)
Quarter: 2012Q2

REPORT INFORMATION
  Report Type: 
  Country: None (occurrence: None)
  Receive Date: 20120404
  Receipt Date: 20120322
  Transmission Date: 20120825
  Serious: No
  Sender: FDA-Public Use
  Company Number: JP-ELI_LILLY_AND_COMPANY-JP201202006974

PATIENT
  Sex: Female
  Weight: 51 kg

DRUGS (14)
  1. SEROQUEL [Concomitant]
     Dosage: UNK
     Dates: start: 20111207, end: 20111215
  2. SEROQUEL [Concomitant]
     Dosage: UNK
     Dates: start: 20120118, end: 20120215
  3. SEROQUEL [Concomitant]
     Dosage: UNK
     Dates: start: 20111216, end: 20111225
  4. SEROQUEL [Concomitant]
     Dosage: UNK
     Dates: start: 20120216, end: 20120220
  5. ZYPREXA [Suspect]
     Indication: SCHIZOPHRENIA
     Dosage: 2.5 MG, QD
     Route: 048
     Dates: start: 20110801, end: 20111001
  6. ZYPREXA [Suspect]
     Dosage: 5 MG, QD
     Route: 048
     Dates: start: 20120125, end: 20120131
  7. ZYPREXA [Suspect]
     Dosage: 5 MG, QD
     Route: 048
     Dates: start: 20111001, end: 20120117
  8. ZYPREXA [Suspect]
     Dosage: 2.5 MG, QD
     Route: 048
     Dates: start: 20120201, end: 20120208
  9. DEPAKENE [Concomitant]
     Dosage: UNK
     Dates: start: 20110801, end: 20111215
  10. SEROQUEL [Concomitant]
     Dosage: UNK
     Dates: start: 20120221, end: 20120225
  11. SEROQUEL [Concomitant]
     Dosage: UNK
     Dates: start: 20111226, end: 20120117
  12. LENDORMIN [Concomitant]
     Dosage: UNK
  13. ZYPREXA [Suspect]
     Dosage: 7.5 MG, QD
     Route: 048
     Dates: start: 20120118, end: 20120124
  14. SEROQUEL [Concomitant]
     Indication: INSOMNIA
     Dosage: UNK
     Dates: start: 20111101, end: 20111206

REACTIONS (10)
  - HYPOPHAGIA [None]
  - HYPOGLYCAEMIA [None]
  - HYPERINSULINAEMIA [None]
  - IRRITABILITY [None]
  - ELECTROENCEPHALOGRAM ABNORMAL [None]
  - RESTLESSNESS [None]
  - ANXIETY [None]
  - HYPERGLYCAEMIA [None]
  - ILLUSION [None]
  - AFFECT LABILITY [None]
